FAERS Safety Report 15986035 (Version 1)
Quarter: 2019Q1

REPORT INFORMATION
  Report Type: Spontaneous
  Country: US (occurrence: US)
  Receive Date: 20190220
  Receipt Date: 20190220
  Transmission Date: 20190418
  Serious: Yes (Other)
  Sender: FDA-Public Use
  Company Number: US-ASTRAZENECA-2019SE25106

PATIENT
  Age: 25395 Day
  Sex: Female
  Weight: 65.8 kg

DRUGS (4)
  1. IBRANCE [Suspect]
     Active Substance: PALBOCICLIB
     Indication: LIFE EXPECTANCY SHORTENED
     Dosage: 125 MG EVERY DAY FOR THREE WEEKS THEN OFF FOR A WEEK
     Route: 048
     Dates: start: 201802
  2. IBRANCE [Suspect]
     Active Substance: PALBOCICLIB
     Indication: LIFE EXPECTANCY SHORTENED
     Route: 048
     Dates: start: 20180409
  3. FASLODEX [Suspect]
     Active Substance: FULVESTRANT
     Route: 030
  4. ZYRTEC [Concomitant]
     Active Substance: CETIRIZINE HYDROCHLORIDE
     Indication: URTICARIA
     Route: 048

REACTIONS (11)
  - Breast cancer recurrent [Unknown]
  - Weight decreased [Unknown]
  - Pus in stool [Not Recovered/Not Resolved]
  - Dysuria [Not Recovered/Not Resolved]
  - White blood cell count decreased [Unknown]
  - Intestinal metastasis [Unknown]
  - Full blood count decreased [Unknown]
  - Malaise [Unknown]
  - Haematochezia [Not Recovered/Not Resolved]
  - Pollakiuria [Not Recovered/Not Resolved]
  - Urticaria [Unknown]

NARRATIVE: CASE EVENT DATE: 20180209
